FAERS Safety Report 7238054-X (Version None)
Quarter: 2011Q1

REPORT INFORMATION
  Report Type: 
  Country: None (occurrence: None)
  Receive Date: 20110121
  Receipt Date: 20110113
  Transmission Date: 20110831
  Serious: Yes (Hospitalization)
  Sender: FDA-Public Use
  Company Number: B0641032A

PATIENT
  Sex: Female
  Weight: 73 kg

DRUGS (7)
  1. TOPOTECAN [Suspect]
     Indication: OVARIAN CANCER
     Route: 042
     Dates: start: 20100125
  2. GLIBENHEXAL [Concomitant]
     Indication: DIABETES MELLITUS
     Dosage: 7MG PER DAY
     Route: 048
     Dates: start: 19950101
  3. BLINDED STUDY MEDICATION [Suspect]
     Indication: OVARIAN CANCER
     Route: 048
     Dates: start: 20100130
  4. LEVOTHYROXINE SODIUM [Concomitant]
     Indication: HYPOTHYROIDISM
     Dosage: 100UG PER DAY
     Route: 048
     Dates: start: 19600101
  5. NIFEHEXAL [Concomitant]
     Indication: HYPERTENSION
     Dosage: 30MG PER DAY
     Route: 048
     Dates: start: 19650101
  6. INNOHEP [Concomitant]
     Indication: ANTICOAGULANT THERAPY
     Dosage: 1000UNIT PER DAY
     Route: 058
     Dates: start: 20091001
  7. RAMIPRIL [Concomitant]
     Indication: HYPERTENSION
     Dosage: 2.5MG PER DAY
     Route: 048
     Dates: start: 20090701

REACTIONS (3)
  - PLEURAL EFFUSION [None]
  - LEUKOPENIA [None]
  - DYSPNOEA [None]
